FAERS Safety Report 5018761-X (Version None)
Quarter: 2006Q2

REPORT INFORMATION
  Report Type: 
  Country: None (occurrence: None)
  Receive Date: 20060526
  Receipt Date: 20060519
  Transmission Date: 20061013
  Serious: Yes (Other)
  Sender: FDA-Public Use
  Company Number: 200612124BCC

PATIENT
  Sex: Female
  Weight: 90.7194 kg

DRUGS (5)
  1. ASPIRIN [Suspect]
     Dosage: 325 MG, ONCE, ORAL
     Route: 048
     Dates: start: 19860101
  2. LEVOXYL [Concomitant]
  3. LISNIOPRIL [Concomitant]
  4. TENORMIN [Concomitant]
  5. LIPITOR [Concomitant]

REACTIONS (1)
  - CEREBROVASCULAR ACCIDENT [None]
